FAERS Safety Report 9643305 (Version 1)
Quarter: 2013Q4

REPORT INFORMATION
  Report Type: Spontaneous
  Country: AT (occurrence: AT)
  Receive Date: 20131024
  Receipt Date: 20131024
  Transmission Date: 20140711
  Serious: Yes (Other)
  Sender: FDA-Public Use
  Company Number: AT-ELI_LILLY_AND_COMPANY-AT201310005185

PATIENT
  Age: 24 Year
  Sex: Female
  Weight: 64 kg

DRUGS (25)
  1. ZYPREXA [Suspect]
     Indication: PRODUCT USED FOR UNKNOWN INDICATION
     Dosage: 1 DF, UNKNOWN
     Route: 065
  2. ZYPREXA [Suspect]
     Dosage: 10 MG, QD
     Route: 065
     Dates: start: 20130715
  3. TEMESTA /00273201/ [Suspect]
     Indication: PRODUCT USED FOR UNKNOWN INDICATION
     Dosage: 2.5 MG, UNKNOWN
     Route: 065
     Dates: start: 20130605, end: 20130605
  4. TEMESTA /00273201/ [Suspect]
     Dosage: 5 MG, UNKNOWN
     Dates: start: 20130606, end: 20130606
  5. TEMESTA /00273201/ [Suspect]
     Dosage: 7.5 MG, UNKNOWN
     Route: 065
     Dates: start: 20130607, end: 20130713
  6. TEMESTA /00273201/ [Suspect]
     Dosage: 6.25 MG, UNKNOWN
     Route: 065
     Dates: start: 20130614, end: 20130614
  7. TEMESTA /00273201/ [Suspect]
     Dosage: 5 MG, UNKNOWN
     Route: 065
     Dates: start: 20130615, end: 20130623
  8. TEMESTA /00273201/ [Suspect]
     Dosage: 3.75 MG, UNKNOWN
     Route: 065
     Dates: start: 20130624, end: 20130625
  9. TEMESTA /00273201/ [Suspect]
     Dosage: 2.5 MG, UNKNOWN
     Route: 065
     Dates: start: 20130626, end: 20130702
  10. TEMESTA /00273201/ [Suspect]
     Dosage: 3.75 MG, UNKNOWN
     Route: 065
     Dates: start: 20130703, end: 20130703
  11. TEMESTA /00273201/ [Suspect]
     Dosage: 5 MG, UNKNOWN
     Route: 065
     Dates: start: 20130704, end: 20130716
  12. TEMESTA /00273201/ [Suspect]
     Dosage: 1 MG, UNKNOWN
     Route: 065
  13. RISPERDAL [Suspect]
     Indication: PRODUCT USED FOR UNKNOWN INDICATION
     Dosage: 6 MG, UNKNOWN
     Route: 065
     Dates: start: 20130606, end: 20130606
  14. RISPERDAL [Suspect]
     Dosage: 8 MG, UNKNOWN
     Route: 065
     Dates: start: 20130607, end: 20130614
  15. RISPERDAL [Suspect]
     Dosage: 6 MG, UNKNOWN
     Route: 065
     Dates: start: 20130615, end: 20130709
  16. RISPERDAL [Suspect]
     Dosage: 4 MG, UNKNOWN
     Route: 065
     Dates: start: 20130710, end: 20130715
  17. RISPERDAL [Suspect]
     Dosage: 2 MG, UNKNOWN
     Route: 065
  18. TRESLEEN [Suspect]
     Indication: PRODUCT USED FOR UNKNOWN INDICATION
     Dosage: 50 MG, UNKNOWN
     Route: 065
     Dates: start: 20130613
  19. TRITTICO [Suspect]
     Indication: PRODUCT USED FOR UNKNOWN INDICATION
     Dosage: 150 MG, UNKNOWN
     Route: 065
     Dates: start: 20130606, end: 20130715
  20. ABILIFY [Suspect]
     Indication: DELUSION
     Dosage: 10 MG, UNKNOWN
     Route: 065
     Dates: start: 20130703, end: 20130707
  21. ABILIFY [Suspect]
     Dosage: 20 MG, UNKNOWN
     Route: 065
     Dates: start: 20130708, end: 20130709
  22. ABILIFY [Suspect]
     Dosage: 30 MG, UNKNOWN
     Route: 065
     Dates: start: 20130710, end: 20130715
  23. ZELDOX                             /01487002/ [Concomitant]
     Indication: PRODUCT USED FOR UNKNOWN INDICATION
     Dosage: 40 MG, UNKNOWN
     Route: 065
  24. ZELDOX                             /01487002/ [Concomitant]
     Dosage: 80 MG, UNKNOWN
     Route: 065
  25. DOMINAL FORTE [Concomitant]
     Indication: PRODUCT USED FOR UNKNOWN INDICATION
     Dosage: 80 MG, QD
     Route: 065
     Dates: start: 20130716

REACTIONS (6)
  - Eyelid oedema [Recovered/Resolved]
  - Schizophrenia [Unknown]
  - Binge eating [Recovering/Resolving]
  - Weight decreased [Unknown]
  - Hyperprolactinaemia [Unknown]
  - Intentional drug misuse [Recovered/Resolved]
